FAERS Safety Report 7152948-5 (Version None)
Quarter: 2010Q4

REPORT INFORMATION
  Report Type: 
  Country: None (occurrence: None)
  Receive Date: 20101213
  Receipt Date: 20101130
  Transmission Date: 20110411
  Serious: Yes (Hospitalization)
  Sender: FDA-Public Use
  Company Number: US-JNJCH-2010028263

PATIENT
  Age: 3 Year
  Sex: Female
  Weight: 10.9 kg

DRUGS (3)
  1. BENADRYL [Suspect]
     Indication: SINUSITIS
     Dosage: TEXT:AS RECOMMENDED BY PHYSICIAN
     Route: 048
  2. CHILDREN'S TYLENOL SUSPENSION [Suspect]
     Indication: SINUSITIS
     Dosage: TEXT:AS RECOMMENDED BY PHYSICIAN
     Route: 048
  3. CHILDREN'S MOTRIN [Suspect]
     Indication: SINUSITIS
     Dosage: TEXT:AS RECOMMENDED BY PHYSICIAN
     Route: 048

REACTIONS (1)
  - INFECTION [None]
